FAERS Safety Report 18198544 (Version 1)
Quarter: 2020Q3

REPORT INFORMATION
  Report Type: Report from Study
  Country: IT (occurrence: IT)
  Receive Date: 20200826
  Receipt Date: 20200826
  Transmission Date: 20201103
  Serious: Yes (Other)
  Sender: FDA-Public Use
  Company Number: IT-MYLANLABS-2020M1074129

PATIENT
  Sex: Male

DRUGS (12)
  1. BLEOMYCIN [Suspect]
     Active Substance: BLEOMYCIN SULFATE
     Dosage: 10 MILLIGRAM, CYCLE, CONTINUOUS INFUSION ADMINISTERED OVER 12 HOURS FROM DAYS ...
     Route: 042
  2. GRANISETRON [Concomitant]
     Active Substance: GRANISETRON
     Indication: PREMEDICATION
     Dosage: 3 MILLIGRAM, ADMINISTERED OVER 30 MINUTES ON DAYS 1 TO 5
     Route: 042
  3. FOSAPREPITANT [Concomitant]
     Active Substance: FOSAPREPITANT
     Indication: PREMEDICATION
     Dosage: 150 MILLIGRAM,ADMINISTERED OVER 30 MINUTES ON DAYS 1, PRIOR TO BLEOMYCIN
     Route: 042
  4. BLEOMYCIN [Suspect]
     Active Substance: BLEOMYCIN SULFATE
     Indication: TESTICULAR GERM CELL TUMOUR
     Dosage: 15 MILLIGRAM, CYCLE, IV PUSH ON DAY 1, AS PART OF THE MODIFIED?BEP (MBEP) REGIMEN
     Route: 042
  5. POTASSIUM CHLORIDE. [Concomitant]
     Active Substance: POTASSIUM CHLORIDE
     Indication: FLUID REPLACEMENT
     Dosage: 20 MILLIEQUIVALENT,, DISSOLVED IN SODIUM CHLORIDE AND ADMINISTERED OVER 24 HOURS ON DAYS 1 TO 5
     Route: 042
  6. DEXAMETHASONE. [Concomitant]
     Active Substance: DEXAMETHASONE
     Indication: PREMEDICATION
     Dosage: 8 MILLIGRAM, ADMINISTERED OVER 30 MINUTES ON DAYS 1 TO 5
     Route: 042
  7. RANITIDINE. [Concomitant]
     Active Substance: RANITIDINE
     Indication: PREMEDICATION
     Dosage: 100 MILLIGRAM, ADMINISTERED OVER 30 MINUTES ON DAYS 1 TO 5
     Route: 042
  8. SALINE                             /00075401/ [Concomitant]
     Active Substance: SODIUM CHLORIDE
     Indication: VEHICLE SOLUTION USE
     Dosage: 500 MILLILITER, ADMINISTERED OVER 24 HOURS ON DAYS 1 TO 5
     Route: 042
  9. CISPLATIN. [Suspect]
     Active Substance: CISPLATIN
     Indication: TESTICULAR GERM CELL TUMOUR
     Dosage: 20 MG/SQ. M, CYCLE,ADMINISTERED OVER 3 HOURS ON DAYS 1 TO 5, AS PART OF THE MODIFIED?BEP (MBEP)
     Route: 042
  10. ETOPOSIDE. [Suspect]
     Active Substance: ETOPOSIDE
     Indication: TESTICULAR GERM CELL TUMOUR
     Dosage: 100 MG/SQ. M, CYCLE, ADMINISTERED OVER 60 MINUTES ON DAYS 1 TO 5, AS PART OF THE MODIFIED?BEP (MBEP)
     Route: 042
  11. DEXAMETHASONE. [Concomitant]
     Active Substance: DEXAMETHASONE
     Dosage: 4 MILLIGRAM, ADMINISTERED OVER 15 MINUTES ON DAY 1, PRIOR TO BLEOMYCIN
     Route: 042
  12. MAGNESIUM SULFATE. [Concomitant]
     Active Substance: MAGNESIUM SULFATE
     Indication: FLUID REPLACEMENT
     Dosage: 20 MILLIEQUIVALENT, DISSOLVED IN SODIUM CHLORIDE AND ADMINISTERED OVER 24 HOURS ON DAYS 1 TO 5
     Route: 042

REACTIONS (1)
  - Pulmonary toxicity [Recovered/Resolved]
